FAERS Safety Report 20098549 (Version 1)
Quarter: 2021Q4

REPORT INFORMATION
  Report Type: Spontaneous
  Country: US (occurrence: US)
  Receive Date: 20211122
  Receipt Date: 20211122
  Transmission Date: 20220303
  Serious: Yes (Other)
  Sender: FDA-Public Use
  Company Number: US-BRACCO-2020US04715

PATIENT
  Age: 72 Year
  Sex: Male

DRUGS (8)
  1. LUMASON [Suspect]
     Active Substance: SULFUR HEXAFLUORIDE
     Indication: Echocardiogram
     Dosage: 1 ML, SINGLE
     Dates: start: 20201116, end: 20201116
  2. LUMASON [Suspect]
     Active Substance: SULFUR HEXAFLUORIDE
     Indication: Echocardiogram
     Dosage: 1 ML, SINGLE
     Dates: start: 20201116, end: 20201116
  3. LUMASON [Suspect]
     Active Substance: SULFUR HEXAFLUORIDE
     Indication: Echocardiogram
     Dosage: 1 ML, SINGLE
     Dates: start: 20201116, end: 20201116
  4. OXYGEN [Concomitant]
     Active Substance: OXYGEN
     Route: 055
  5. ZYPREXA [Concomitant]
     Active Substance: OLANZAPINE
  6. GEODON                             /01487002/ [Concomitant]
  7. LAMOTRIGINE [Concomitant]
     Active Substance: LAMOTRIGINE
  8. PROZAC [Concomitant]
     Active Substance: FLUOXETINE HYDROCHLORIDE

REACTIONS (1)
  - Hypoxia [Recovered/Resolved]

NARRATIVE: CASE EVENT DATE: 20201116
